FAERS Safety Report 16322110 (Version 1)
Quarter: 2019Q2

REPORT INFORMATION
  Report Type: Report from Study
  Country: PR (occurrence: PR)
  Receive Date: 20190516
  Receipt Date: 20190516
  Transmission Date: 20190711
  Serious: Yes (Hospitalization)
  Sender: FDA-Public Use
  Company Number: PR-JNJFOC-20190518100

PATIENT
  Age: 81 Year
  Sex: Male

DRUGS (6)
  1. DICLOFENAC [Concomitant]
     Active Substance: DICLOFENAC
  2. CILOSTAZOL. [Concomitant]
     Active Substance: CILOSTAZOL
  3. GABAPENTIN. [Concomitant]
     Active Substance: GABAPENTIN
  4. IMBRUVICA [Suspect]
     Active Substance: IBRUTINIB
     Indication: CHRONIC LYMPHOCYTIC LEUKAEMIA
     Route: 048
     Dates: start: 20190419, end: 20190505
  5. LEVOTHYROXINE. [Concomitant]
     Active Substance: LEVOTHYROXINE
  6. METOPROLOL. [Concomitant]
     Active Substance: METOPROLOL

REACTIONS (4)
  - Contusion [Unknown]
  - Pyrexia [Unknown]
  - Cough [Unknown]
  - Hyperhidrosis [Unknown]

NARRATIVE: CASE EVENT DATE: 20190505
